FAERS Safety Report 10820607 (Version 1)
Quarter: 2015Q1

REPORT INFORMATION
  Report Type: Report from Study
  Country: US (occurrence: None)
  Receive Date: 20150213
  Receipt Date: 20150213
  Transmission Date: 20150721
  Serious: Yes (Other)
  Sender: FDA-Public Use
  Company Number: 2014BI130183

PATIENT
  Age: 45 Year
  Sex: Female

DRUGS (3)
  1. CENTRUM [Concomitant]
     Active Substance: VITAMINS
  2. B COMPLEX 1 [Concomitant]
  3. AVONEX [Suspect]
     Active Substance: INTERFERON BETA-1A
     Indication: MULTIPLE SCLEROSIS
     Route: 030
     Dates: start: 19961001

REACTIONS (4)
  - Influenza like illness [None]
  - Muscular weakness [None]
  - Pyrexia [None]
  - Incorrect dose administered [None]

NARRATIVE: CASE EVENT DATE: 1996
